FAERS Safety Report 16131822 (Version 1)
Quarter: 2019Q2

REPORT INFORMATION
  Report Type: Spontaneous
  Country: US (occurrence: US)
  Receive Date: 20190328
  Receipt Date: 20190328
  Transmission Date: 20190711
  Serious: Yes (Other)
  Sender: FDA-Public Use
  Company Number: None

PATIENT
  Age: 54 Year
  Sex: Female
  Weight: 78.75 kg

DRUGS (1)
  1. DESVENLAFAXINE ER SUCCINATE 50 MG T [Suspect]
     Active Substance: DESVENLAFAXINE
     Indication: MAJOR DEPRESSION
     Dosage: ?          QUANTITY:1 TABLET(S);?
     Route: 048

REACTIONS (17)
  - Chills [None]
  - Contusion [None]
  - Bronchitis [None]
  - Faeces pale [None]
  - Loss of libido [None]
  - Headache [None]
  - Decreased appetite [None]
  - Heart rate increased [None]
  - Lung disorder [None]
  - Diarrhoea [None]
  - Pruritus [None]
  - Hyperhidrosis [None]
  - Dysuria [None]
  - Blood bilirubin decreased [None]
  - Anger [None]
  - Orthostatic hypotension [None]
  - Red cell distribution width increased [None]

NARRATIVE: CASE EVENT DATE: 20181212
